FAERS Safety Report 4543325-1 (Version None)
Quarter: 2004Q4

REPORT INFORMATION
  Report Type: 
  Country: None (occurrence: None)
  Receive Date: 20041229
  Receipt Date: 20041220
  Transmission Date: 20050328
  Serious: Yes (Hospitalization)
  Sender: FDA-Public Use
  Company Number: 2004-DE-06299GD

PATIENT
  Age: 70 Year
  Sex: Male

DRUGS (1)
  1. CLARITHROMYCIN [Suspect]
     Indication: OTITIS MEDIA
     Dosage: NR

REACTIONS (1)
  - GENERALISED ERYTHEMA [None]
